FAERS Safety Report 5304325-7 (Version None)
Quarter: 2007Q2

REPORT INFORMATION
  Report Type: 
  Country: None (occurrence: None)
  Receive Date: 20070423
  Receipt Date: 20070412
  Transmission Date: 20071010
  Serious: Yes (Hospitalization)
  Sender: FDA-Public Use
  Company Number: PHBS2007JP06511

PATIENT
  Age: 84 Year
  Sex: Male

DRUGS (1)
  1. NEORAL [Suspect]
     Indication: GLOMERULONEPHRITIS MEMBRANOUS
     Dosage: 75 MG DAILY
     Route: 048
     Dates: start: 20070201, end: 20070301

REACTIONS (4)
  - DEHYDRATION [None]
  - DEMENTIA [None]
  - LISTLESS [None]
  - RESTLESSNESS [None]
